FAERS Safety Report 6122302-3 (Version None)
Quarter: 2009Q1

REPORT INFORMATION
  Report Type: 
  Country: None (occurrence: None)
  Receive Date: 20090316
  Receipt Date: 20090316
  Transmission Date: 20090719
  Serious: Yes (Life-Threatening, Hospitalization, Other)
  Sender: FDA-Public Use
  Company Number: None

PATIENT
  Sex: Female
  Weight: 65.318 kg

DRUGS (2)
  1. LYRICA [Suspect]
     Indication: MIGRAINE
     Dosage: 200MG TWICE A DAY PO, APPROXIMATELY 6 MONTHS
     Route: 048
     Dates: start: 20080715, end: 20081231
  2. LYRICA [Suspect]
     Indication: NEURALGIA
     Dosage: 200MG TWICE A DAY PO, APPROXIMATELY 6 MONTHS
     Route: 048
     Dates: start: 20080715, end: 20081231

REACTIONS (5)
  - AMNESIA [None]
  - DIPLOPIA [None]
  - FALL [None]
  - IMPAIRED DRIVING ABILITY [None]
  - IMPAIRED WORK ABILITY [None]
